FAERS Safety Report 18113582 (Version 1)
Quarter: 2020Q3

REPORT INFORMATION
  Report Type: Spontaneous
  Country: US (occurrence: US)
  Receive Date: 20200805
  Receipt Date: 20200805
  Transmission Date: 20201103
  Serious: Yes (Death, Hospitalization)
  Sender: FDA-Public Use
  Company Number: US-BAYER-2020-152823

PATIENT
  Sex: Male

DRUGS (1)
  1. ADEMPAS [Suspect]
     Active Substance: RIOCIGUAT
     Indication: PULMONARY HYPERTENSION

REACTIONS (6)
  - Gastrointestinal haemorrhage [None]
  - Anaemia [None]
  - Hypoxia [None]
  - Shock [Fatal]
  - Cardiac arrest [None]
  - Bradycardia [None]
